FAERS Safety Report 8331088-3 (Version None)
Quarter: 2012Q2

REPORT INFORMATION
  Report Type: 
  Country: None (occurrence: None)
  Receive Date: 20120502
  Receipt Date: 20120411
  Transmission Date: 20120825
  Serious: No
  Sender: FDA-Public Use
  Company Number: US-AMGEN-USASP2012022982

PATIENT
  Age: 48 Year
  Sex: Male

DRUGS (1)
  1. ENBREL [Suspect]
     Indication: ANKYLOSING SPONDYLITIS
     Dosage: 50 MG, QWK
     Dates: start: 20070615

REACTIONS (6)
  - JOINT STIFFNESS [None]
  - ARTHRALGIA [None]
  - BACK PAIN [None]
  - MUSCLE SPASMS [None]
  - IRITIS [None]
  - THERAPEUTIC RESPONSE DECREASED [None]
